FAERS Safety Report 24687663 (Version 1)
Quarter: 2024Q4

REPORT INFORMATION
  Report Type: Spontaneous
  Country: BE (occurrence: BE)
  Receive Date: 20241202
  Receipt Date: 20241202
  Transmission Date: 20250114
  Serious: Yes (Death, Other)
  Sender: BAYER HEALTHCARE PHARMACEUTICALS INC.
  Company Number: BE-BAYER-2024A164630

PATIENT
  Age: 68 Year

DRUGS (2)
  1. ULTRAVIST [Suspect]
     Active Substance: IOPROMIDE
     Indication: Computerised tomogram
     Dosage: UNK UNK, ONCE
     Dates: start: 20241114, end: 20241114
  2. ULTRAVIST [Suspect]
     Active Substance: IOPROMIDE
     Indication: Cardiomyopathy

REACTIONS (4)
  - Contrast media reaction [Fatal]
  - Malaise [Fatal]
  - Blood pressure decreased [Fatal]
  - Respiratory arrest [Fatal]

NARRATIVE: CASE EVENT DATE: 20241114
